FAERS Safety Report 7635361-3 (Version None)
Quarter: 2011Q3

REPORT INFORMATION
  Report Type: 
  Country: None (occurrence: None)
  Receive Date: 20110726
  Receipt Date: 20110308
  Transmission Date: 20111222
  Serious: No
  Sender: FDA-Public Use
  Company Number: US-GLAXOSMITHKLINE-A0917159A

PATIENT
  Age: 59 Year
  Sex: Female

DRUGS (2)
  1. EXTINA [Suspect]
     Indication: PRODUCT USED FOR UNKNOWN INDICATION
     Route: 061
     Dates: start: 20110217
  2. KETOCONAZOLE [Concomitant]
     Route: 061
     Dates: start: 20110217

REACTIONS (1)
  - SKIN INDURATION [None]
